FAERS Safety Report 19661564 (Version 1)
Quarter: 2021Q3

REPORT INFORMATION
  Report Type: Spontaneous
  Country: US (occurrence: US)
  Receive Date: 20210805
  Receipt Date: 20210805
  Transmission Date: 20211014
  Serious: Yes (Hospitalization, Other)
  Sender: FDA-Public Use
  Company Number: US-GLAXOSMITHKLINE-US2021163608

PATIENT
  Age: 62 Year
  Sex: Male

DRUGS (4)
  1. PROVENTIL [Suspect]
     Active Substance: ALBUTEROL
     Indication: CHRONIC OBSTRUCTIVE PULMONARY DISEASE
     Dosage: 2 PUFF(S), Z,EVERY 4 HOURS, AS NEEDED
     Dates: start: 20160730
  2. BREO ELLIPTA [Suspect]
     Active Substance: FLUTICASONE FUROATE\VILANTEROL TRIFENATATE
     Indication: CHRONIC OBSTRUCTIVE PULMONARY DISEASE
     Dosage: 1 PUFF(S), QD
     Route: 055
     Dates: start: 20180730
  3. GABAPENTIN. [Concomitant]
     Active Substance: GABAPENTIN
     Indication: MYALGIA
     Dosage: 100 MG, EVERY 6 HOURS
     Dates: start: 20210625
  4. TYLENOL [Concomitant]
     Active Substance: ACETAMINOPHEN
     Indication: PAIN
     Dosage: 500 MG , EVERY 6 HOURS
     Dates: start: 20210701

REACTIONS (9)
  - Hip fracture [Unknown]
  - Upper limb fracture [Unknown]
  - Ligament sprain [Unknown]
  - Facial bones fracture [Unknown]
  - Wrist fracture [Unknown]
  - Fall [Recovered/Resolved]
  - Epistaxis [Unknown]
  - Pain [Not Recovered/Not Resolved]
  - Mouth haemorrhage [Unknown]

NARRATIVE: CASE EVENT DATE: 20210625
